FAERS Safety Report 15210315 (Version 7)
Quarter: 2019Q1

REPORT INFORMATION
  Report Type: Spontaneous
  Country: US (occurrence: US)
  Receive Date: 20180727
  Receipt Date: 20190326
  Transmission Date: 20190417
  Serious: No
  Sender: FDA-Public Use
  Company Number: US-ACTELION-A-NJ2018-176021

PATIENT
  Age: 54 Year
  Sex: Female
  Weight: 76.64 kg

DRUGS (10)
  1. OPSUMIT [Suspect]
     Active Substance: MACITENTAN
     Indication: PULMONARY HYPERTENSION
     Dosage: 10 MG, QD
     Route: 048
     Dates: start: 20180705
  2. MORPHINE [Concomitant]
     Active Substance: MORPHINE
     Dosage: 100 MG, BID
  3. SULFASALAZINE. [Suspect]
     Active Substance: SULFASALAZINE
     Indication: PRODUCT USED FOR UNKNOWN INDICATION
     Route: 065
  4. ARAVA [Concomitant]
     Active Substance: LEFLUNOMIDE
     Dosage: UNK
  5. PAXIL [Concomitant]
     Active Substance: PAROXETINE HYDROCHLORIDE
     Dosage: 40 MG, QD
  6. PERCOCET [Concomitant]
     Active Substance: ACETAMINOPHEN\OXYCODONE HYDROCHLORIDE
     Dosage: 10/325MG TWICE A DAY PRN
  7. LASIX [Concomitant]
     Active Substance: FUROSEMIDE
     Dosage: UNK
  8. POTASSIUM [Concomitant]
     Active Substance: POTASSIUM
  9. PREDNISONE. [Concomitant]
     Active Substance: PREDNISONE
     Dosage: 5 MG, QD
  10. PROTONIX [Concomitant]
     Active Substance: PANTOPRAZOLE SODIUM
     Dosage: 40 MG, QD

REACTIONS (15)
  - Dyspnoea [Unknown]
  - Fatigue [Unknown]
  - Oxygen saturation [Unknown]
  - Ureteric stenosis [Unknown]
  - Dyspnoea at rest [Unknown]
  - Pain [Not Recovered/Not Resolved]
  - Abdominal pain upper [Unknown]
  - Oedema [Unknown]
  - Tooth infection [Unknown]
  - Back pain [Unknown]
  - Urinary retention [Unknown]
  - Hiatus hernia [Unknown]
  - Anxiety [Unknown]
  - Nausea [Unknown]
  - Oedema peripheral [Unknown]

NARRATIVE: CASE EVENT DATE: 201807
